FAERS Safety Report 21350518 (Version 2)
Quarter: 2022Q3

REPORT INFORMATION
  Report Type: Spontaneous
  Country: BR (occurrence: BR)
  Receive Date: 20220919
  Receipt Date: 20220927
  Transmission Date: 20221027
  Serious: Yes (Other)
  Sender: FDA-Public Use
  Company Number: BR-PFIZER INC-PV202200062778

PATIENT
  Age: 45 Year
  Sex: Female
  Weight: 68 kg

DRUGS (4)
  1. TRAZIMERA [Suspect]
     Active Substance: TRASTUZUMAB-QYYP
     Indication: Ovarian neoplasm
     Dosage: 6 MG/KG, CYCLIC (CYCLE C1D1)
  2. TRAZIMERA [Suspect]
     Active Substance: TRASTUZUMAB-QYYP
     Dosage: 8 MG/KG, CYCLIC
     Route: 042
     Dates: start: 20220905, end: 20220905
  3. CISPLATIN [Concomitant]
     Active Substance: CISPLATIN
     Indication: Ovarian neoplasm
     Dosage: 75 MG/M2, CYCLIC (CYCLE C1D1-21 DAYS)
     Dates: start: 20220905
  4. PACLITAXEL [Concomitant]
     Active Substance: PACLITAXEL
     Indication: Ovarian neoplasm
     Dosage: 175 MG/M2, CYCLIC (CYCLE C1D1-21 DAYS)
     Dates: start: 20220905

REACTIONS (7)
  - Chest discomfort [Recovered/Resolved]
  - Tremor [Recovered/Resolved]
  - Pallor [Recovered/Resolved]
  - Dyspnoea [Recovered/Resolved]
  - Hypertension [Recovered/Resolved]
  - Oxygen saturation decreased [Recovered/Resolved]
  - Off label use [Unknown]

NARRATIVE: CASE EVENT DATE: 20211101
